FAERS Safety Report 26005201 (Version 5)
Quarter: 2025Q4

REPORT INFORMATION
  Report Type: Spontaneous
  Country: US (occurrence: US)
  Receive Date: 20251106
  Receipt Date: 20251212
  Transmission Date: 20260118
  Serious: No
  Sender: Haleon PLC
  Company Number: US-HALEON-2271250

PATIENT

DRUGS (2)
  1. NICODERM CQ [Suspect]
     Active Substance: NICOTINE
     Indication: Product used for unknown indication
  2. NICODERM CQ [Suspect]
     Active Substance: NICOTINE

REACTIONS (8)
  - Application site irritation [Unknown]
  - Suspected counterfeit product [Unknown]
  - Product adhesion issue [Unknown]
  - Application site pruritus [Unknown]
  - Product odour abnormal [Unknown]
  - Application site erythema [Unknown]
  - Application site swelling [Unknown]
  - Rash [Unknown]
